FAERS Safety Report 16545834 (Version 1)
Quarter: 2019Q3

REPORT INFORMATION
  Report Type: Spontaneous
  Country: US (occurrence: US)
  Receive Date: 20190709
  Receipt Date: 20190709
  Transmission Date: 20191004
  Serious: No
  Sender: FDA-Public Use
  Company Number: US-SHIRE-US201921687

PATIENT
  Age: 40 Year
  Sex: Female

DRUGS (1)
  1. VYVANSE [Suspect]
     Active Substance: LISDEXAMFETAMINE DIMESYLATE
     Indication: ATTENTION DEFICIT/HYPERACTIVITY DISORDER
     Dosage: 70 MILLIGRAM, 1X/DAY:QD
     Route: 065

REACTIONS (3)
  - Product prescribing issue [Unknown]
  - Vision blurred [Unknown]
  - Somnolence [Unknown]

NARRATIVE: CASE EVENT DATE: 20190629
